FAERS Safety Report 21759471 (Version 1)
Quarter: 2022Q4

REPORT INFORMATION
  Report Type: Report from Study
  Country: US (occurrence: US)
  Receive Date: 20221221
  Receipt Date: 20221221
  Transmission Date: 20230112
  Serious: No
  Sender: FDA-Public Use
  Company Number: US-ABBVIE-4192977

PATIENT
  Age: 60 Year
  Sex: Male
  Weight: 111.13 kg

DRUGS (4)
  1. RINVOQ [Suspect]
     Active Substance: UPADACITINIB
     Indication: Rheumatoid arthritis
     Dosage: FORM STRENGTH: 15  MG
     Route: 048
     Dates: start: 202005
  2. METHOTREXATE [Concomitant]
     Active Substance: METHOTREXATE
     Indication: Product used for unknown indication
     Dates: start: 201506
  3. FOLIC ACID [Concomitant]
     Active Substance: FOLIC ACID
     Indication: Product used for unknown indication
  4. COVID-19 vaccine [Concomitant]
     Indication: COVID-19 immunisation
     Route: 030

REACTIONS (3)
  - COVID-19 [Unknown]
  - Cellulitis [Unknown]
  - Obesity [Unknown]

NARRATIVE: CASE EVENT DATE: 20220101
